FAERS Safety Report 5164870-4 (Version None)
Quarter: 2006Q4

REPORT INFORMATION
  Report Type: 
  Country: None (occurrence: None)
  Receive Date: 20061205
  Receipt Date: 20061031
  Transmission Date: 20070319
  Serious: Yes (Other)
  Sender: FDA-Public Use
  Company Number: DE-ELI_LILLY_AND_COMPANY-DE200611004077

PATIENT
  Age: 76 Year
  Sex: Male
  Weight: 70 kg

DRUGS (5)
  1. CYMBALTA [Suspect]
     Indication: DEPRESSION
     Dosage: 30 MG, DAILY (1/D)
     Route: 048
     Dates: start: 20060705
  2. DETRUSITOL /SWE/ [Concomitant]
     Indication: PROSTATE CANCER
     Dosage: 2 MG, DAILY (1/D)
     Route: 048
     Dates: start: 20060501
  3. NOVALGIN/SCH/ [Concomitant]
     Indication: RADICULOPATHY
     Dosage: 2 G, DAILY (1/D)
     Route: 048
     Dates: start: 20060705
  4. TRAMADOL HCL [Concomitant]
     Indication: RADICULOPATHY
     Dosage: 100 MG, DAILY (1/D)
     Route: 048
     Dates: start: 20060705
  5. ANDROCUR/NET/ [Concomitant]
     Indication: PROSTATE CANCER
     Route: 030
     Dates: start: 20060501

REACTIONS (1)
  - HYPERTENSION [None]
